FAERS Safety Report 20066688 (Version 3)
Quarter: 2021Q4

REPORT INFORMATION
  Report Type: Spontaneous
  Country: US (occurrence: US)
  Receive Date: 20211115
  Receipt Date: 20211202
  Transmission Date: 20220303
  Serious: Yes (Death, Life-Threatening, Hospitalization, Other)
  Sender: FDA-Public Use
  Company Number: US-AUROBINDO-AUR-APL-2021-046672

PATIENT
  Age: 76 Year
  Sex: Male

DRUGS (4)
  1. METHYLPREDNISOLONE [Suspect]
     Active Substance: METHYLPREDNISOLONE
     Indication: Hypersensitivity pneumonitis
     Dosage: 46 MILLIGRAM, ONCE A DAY
     Route: 065
  2. METHYLPREDNISOLONE [Suspect]
     Active Substance: METHYLPREDNISOLONE
     Indication: Sarcoidosis
     Dosage: 1000 MILLIGRAM, ONCE A DAY
     Route: 065
  3. AMIODARONE [Concomitant]
     Active Substance: AMIODARONE
     Indication: Ventricular tachycardia
     Dosage: UNK
     Route: 065
  4. OXYGEN [Concomitant]
     Active Substance: OXYGEN
     Indication: Respiratory failure
     Dosage: UNK
     Route: 065

REACTIONS (5)
  - Herpes simplex meningoencephalitis [Fatal]
  - Herpes simplex [Fatal]
  - Candida infection [Unknown]
  - Staphylococcal infection [Unknown]
  - Systemic candida [Unknown]
